FAERS Safety Report 8510196-8 (Version None)
Quarter: 2012Q3

REPORT INFORMATION
  Report Type: 
  Country: None (occurrence: None)
  Receive Date: 20120713
  Receipt Date: 20120706
  Transmission Date: 20120928
  Serious: Yes (Hospitalization, Other)
  Sender: FDA-Public Use
  Company Number: US-ASTRAZENECA-2012SE00561

PATIENT
  Age: 59 Year
  Sex: Female
  Weight: 56.7 kg

DRUGS (14)
  1. SEROQUEL [Suspect]
     Route: 048
  2. WELLBUTRIN [Concomitant]
  3. SEROQUEL [Suspect]
     Route: 048
  4. CLONAZEPAM [Concomitant]
  5. SEROQUEL [Suspect]
     Route: 048
  6. SEROQUEL [Suspect]
     Indication: OBSESSIVE-COMPULSIVE DISORDER
     Route: 048
  7. SEROQUEL [Suspect]
     Route: 048
  8. ZOLOFT [Concomitant]
  9. IMITREX [Concomitant]
  10. FLURAZEPAM [Concomitant]
  11. SEROQUEL [Suspect]
     Indication: DEPRESSION
     Route: 048
  12. SEROQUEL [Suspect]
     Route: 048
  13. LUVOX [Concomitant]
  14. SEROQUEL [Suspect]
     Route: 048

REACTIONS (3)
  - FALL [None]
  - INTENTIONAL DRUG MISUSE [None]
  - LOWER LIMB FRACTURE [None]
